FAERS Safety Report 19297838 (Version 2)
Quarter: 2021Q2

REPORT INFORMATION
  Report Type: Spontaneous
  Country: US (occurrence: US)
  Receive Date: 20210524
  Receipt Date: 20210525
  Transmission Date: 20210717
  Serious: No
  Sender: FDA-Public Use
  Company Number: US-MATRIXX INITIATIVES, INC.-2111887

PATIENT
  Sex: Female

DRUGS (1)
  1. ZICAM COLD REMEDY LOZENGES [Suspect]
     Active Substance: HOMEOPATHICS\ZINC ACETATE\ZINC GLUCONATE
     Route: 048

REACTIONS (1)
  - Ageusia [None]
